FAERS Safety Report 8696510 (Version 2)
Quarter: 2013Q2

REPORT INFORMATION
  Report Type: Spontaneous
  Country: US (occurrence: US)
  Receive Date: 20120801
  Receipt Date: 20130523
  Transmission Date: 20140414
  Serious: Yes (Death, Hospitalization)
  Sender: FDA-Public Use
  Company Number: US-BAYER-2012-075736

PATIENT
  Age: 51 Year
  Sex: Female
  Weight: 68.03 kg

DRUGS (9)
  1. YASMIN [Suspect]
     Dosage: UNK
     Dates: start: 200807
  2. OCELLA [Suspect]
     Dosage: UNK
     Dates: start: 200807
  3. PAMPRIN [Concomitant]
     Dosage: UNK UNK, PRN
     Route: 048
  4. IBUPROFEN [Concomitant]
     Dosage: 800 MG, PRN
  5. DRUGS FOR OBSTRUCTIVE AIRWAY DISEASES [Concomitant]
     Dosage: 2 PUFF(S), EVERY 6 HOURS
  6. OXYCODONE [Concomitant]
     Dosage: 5 MG - 325 MG
  7. LORAZEPAM [Concomitant]
     Dosage: 1 MG, UNK
  8. CIPROFLOXACIN [Concomitant]
     Dosage: 500 MG, EVERY 12 HOURS FOR 7 DAYS
  9. HORMONES NOS [Concomitant]

REACTIONS (10)
  - Deep vein thrombosis [None]
  - Pulmonary embolism [Fatal]
  - Deep vein thrombosis [Fatal]
  - Pulmonary embolism [Fatal]
  - Injury [Fatal]
  - Pain [Fatal]
  - General physical health deterioration [Fatal]
  - Emotional distress [None]
  - Anxiety [None]
  - Pain [None]
